FAERS Safety Report 24066730 (Version 1)
Quarter: 2024Q3

REPORT INFORMATION
  Report Type: Spontaneous
  Country: US (occurrence: None)
  Receive Date: 20240709
  Receipt Date: 20240709
  Transmission Date: 20241016
  Serious: Yes (Hospitalization)
  Sender: Public
  Company Number: None

PATIENT
  Age: 69 Year
  Sex: Male
  Weight: 71.5 kg

DRUGS (1)
  1. RITUXIMAB [Suspect]
     Active Substance: RITUXIMAB
     Dates: end: 20230622

REACTIONS (3)
  - Groin pain [None]
  - Testicular swelling [None]
  - Abdominal incarcerated hernia [None]

NARRATIVE: CASE EVENT DATE: 20240626
